FAERS Safety Report 5974752-3 (Version None)
Quarter: 2008Q4

REPORT INFORMATION
  Report Type: 
  Country: None (occurrence: None)
  Receive Date: 20081201
  Receipt Date: 20081125
  Transmission Date: 20090506
  Serious: Yes (Other)
  Sender: FDA-Public Use
  Company Number: AU-PFIZER INC-2008100338

PATIENT
  Sex: Male

DRUGS (3)
  1. LYRICA [Interacting]
     Indication: NEURALGIA
  2. NEURONTIN [Suspect]
  3. SOTALOL HCL [Interacting]

REACTIONS (5)
  - ATRIAL FIBRILLATION [None]
  - BLOOD PRESSURE DECREASED [None]
  - DRUG INEFFECTIVE [None]
  - DRUG INTERACTION [None]
  - HYPERSOMNIA [None]
